FAERS Safety Report 8868708 (Version 1)
Quarter: 2012Q4

REPORT INFORMATION
  Report Type: 
  Country: CA (occurrence: CA)
  Receive Date: 20121024
  Receipt Date: 20121024
  Transmission Date: 20130627
  Serious: Yes (Hospitalization)
  Sender: FDA-Public Use
  Company Number: CA-ELI_LILLY_AND_COMPANY-CA201210004426

PATIENT
  Age: 49 Year
  Sex: Female

DRUGS (15)
  1. FORTEO [Suspect]
     Indication: OSTEOPOROSIS
     Dosage: 20 ug, qd
     Route: 058
     Dates: start: 20120927
  2. CALCITONIN [Concomitant]
  3. LORAZEPAM [Concomitant]
  4. GRAVOL [Concomitant]
  5. FENTANYL [Concomitant]
  6. STATEX [Concomitant]
  7. GABAPENTIN [Concomitant]
  8. NAPROXEN [Concomitant]
  9. D-TABS [Concomitant]
  10. EURO-K [Concomitant]
  11. PREDNISONE [Concomitant]
  12. ORENCIA [Concomitant]
  13. BISOPROLOL [Concomitant]
  14. NEXIUM [Concomitant]
  15. FERROUS SULFATE [Concomitant]

REACTIONS (2)
  - Knee arthroplasty [Recovered/Resolved]
  - Palpitations [Recovered/Resolved]
